FAERS Safety Report 14311516 (Version 1)
Quarter: 2017Q4

REPORT INFORMATION
  Report Type: Spontaneous
  Country: BE (occurrence: BE)
  Receive Date: 20171221
  Receipt Date: 20171221
  Transmission Date: 20180321
  Serious: Yes (Life-Threatening, Hospitalization)
  Sender: FDA-Public Use
  Company Number: BE-CIPLA LTD.-2017BE23754

PATIENT

DRUGS (19)
  1. IRINOTECAN [Suspect]
     Active Substance: IRINOTECAN
     Dosage: 1, 1 CYCLICAL
     Route: 042
  2. AFLIBERCEPT [Suspect]
     Active Substance: AFLIBERCEPT
     Indication: COLORECTAL CANCER METASTATIC
     Dosage: 1, 1 CYCLICAL
     Route: 042
  3. IRINOTECAN [Suspect]
     Active Substance: IRINOTECAN
     Indication: COLORECTAL CANCER METASTATIC
     Dosage: 1, 1 CYCLICAL
     Route: 042
  4. FLUOROURACIL. [Suspect]
     Active Substance: FLUOROURACIL
     Dosage: 1, 1 CYCLICAL
     Route: 042
  5. LEUCOVORIN. [Suspect]
     Active Substance: LEUCOVORIN
     Dosage: 1, 1 CYCLICAL
     Route: 042
  6. DAFALGAN FORTE [Concomitant]
     Dosage: 4 G PRN
     Route: 048
     Dates: start: 20161109
  7. IMODIUM [Concomitant]
     Active Substance: LOPERAMIDE HYDROCHLORIDE
     Dosage: 10 MG, PRN
     Route: 048
     Dates: start: 20171018
  8. FLUOROURACIL. [Suspect]
     Active Substance: FLUOROURACIL
     Indication: COLORECTAL CANCER METASTATIC
     Dosage: 1, 1 CYCLICAL
     Route: 042
  9. AFLIBERCEPT [Suspect]
     Active Substance: AFLIBERCEPT
     Dosage: 1, 1 CYCLICAL
     Route: 042
     Dates: start: 20171004, end: 20171004
  10. PROLIA [Concomitant]
     Active Substance: DENOSUMAB
     Dosage: 60MG/ML: 1 ML
     Route: 058
  11. PANTOPRAZOLE [Concomitant]
     Active Substance: PANTOPRAZOLE
     Dosage: 20 MG, 2 DAYS
     Route: 048
     Dates: start: 20170927
  12. BETMIGA [Concomitant]
     Active Substance: MIRABEGRON
     Dosage: 50 MG, DAILY
     Route: 048
     Dates: start: 20171018
  13. FEROGRAD-500 [Concomitant]
     Dosage: 525 MG, DAILY
     Route: 048
     Dates: start: 20161109
  14. ATROPINE. [Concomitant]
     Active Substance: ATROPINE
     Dosage: 0.25 MG, PRN
     Route: 058
     Dates: start: 20171004
  15. ALOXI [Concomitant]
     Active Substance: PALONOSETRON HYDROCHLORIDE
     Dosage: 0.25 MG, PRN
     Route: 042
     Dates: start: 20171004
  16. MOVICOL [Concomitant]
     Active Substance: POLYETHYLENE GLYCOL 3350\POTASSIUM CHLORIDE\SODIUM BICARBONATE\SODIUM CHLORIDE
     Dosage: 13.8 G, DAILY
     Route: 048
     Dates: start: 20161109
  17. LEUCOVORIN. [Suspect]
     Active Substance: LEUCOVORIN
     Indication: COLORECTAL CANCER METASTATIC
     Dosage: 1, 1 CYCLICAL
     Route: 042
  18. AACIDEXAM [Concomitant]
     Active Substance: DEXAMETHASONE
     Dosage: 10 MG, PRN
     Route: 042
     Dates: start: 20171004
  19. CACIT D3 [Concomitant]
     Active Substance: CALCIUM\CHOLECALCIFEROL
     Dosage: 1000MG/880IE
     Route: 048

REACTIONS (3)
  - General physical health deterioration [Unknown]
  - Hypocalcaemia [Unknown]
  - Decreased appetite [Unknown]

NARRATIVE: CASE EVENT DATE: 20171108
